FAERS Safety Report 22168707 (Version 1)
Quarter: 2023Q2

REPORT INFORMATION
  Report Type: Spontaneous
  Country: CH (occurrence: CH)
  Receive Date: 20230403
  Receipt Date: 20230403
  Transmission Date: 20230721
  Serious: Yes (Hospitalization)
  Sender: FDA-Public Use
  Company Number: CH-SM-2023-11349

PATIENT
  Age: 71 Year
  Sex: Male
  Weight: 81 kg

DRUGS (20)
  1. GABAPENTIN [Suspect]
     Active Substance: GABAPENTIN
     Indication: Product used for unknown indication
     Dosage: 5 DOSAGE FORMS DAILY; 300MG CAPS. 2-1-2-0, PAUSED ON 01/21/2023, FROM 01/25/2023 GABAPENTIN 100MG 0-
     Route: 048
     Dates: end: 20230121
  2. GABAPENTIN [Suspect]
     Active Substance: GABAPENTIN
     Dosage: 100 MILLIGRAM DAILY;
     Route: 048
     Dates: start: 20230125
  3. ASPIRIN [Concomitant]
     Active Substance: ASPIRIN
     Indication: Product used for unknown indication
     Dosage: UNIT DOSE : 100 MG, FREQUENCY TIME : 24  HOURS
     Route: 048
  4. AMLODIPINE BESYLATE [Concomitant]
     Active Substance: AMLODIPINE BESYLATE
     Indication: Product used for unknown indication
     Dosage: FREQUENCY TIME : 12  HOURS, UNIT DOSE : 5 MG
     Route: 048
  5. ATORVASTATIN [Concomitant]
     Active Substance: ATORVASTATIN
     Indication: Product used for unknown indication
     Dosage: UNIT DOSE : 80 MG, FREQUENCY TIME : 24  HOURS
     Route: 048
  6. ELIQUIS [Concomitant]
     Active Substance: APIXABAN
     Indication: Product used for unknown indication
     Dosage: FREQUENCY TIME : 12  HOURS, UNIT DOSE :5 MG
     Route: 048
  7. METOPROLOL SUCCINATE [Concomitant]
     Active Substance: METOPROLOL SUCCINATE
     Indication: Product used for unknown indication
     Dosage: UNIT DOSE :200 MG, FREQUENCY TIME : 24  HOURS
     Route: 048
  8. RAMIPRIL HCT MEPHA [Concomitant]
     Indication: Product used for unknown indication
     Dosage: FREQUENCY TIME : 12  HOURS, UNIT DOSE : 2.5 MG
     Route: 048
     Dates: end: 20230121
  9. TORSEMIDE [Concomitant]
     Active Substance: TORSEMIDE
     Indication: Product used for unknown indication
     Dosage: UNIT DOSE :5 MG, FREQUENCY TIME : 24  HOURS
     Route: 048
  10. CYANOCOBALAMIN [Concomitant]
     Active Substance: CYANOCOBALAMIN
     Indication: Product used for unknown indication
     Dosage: FREQUENCY TIME : 3 MONTHS, UNIT DOSE : 1 MG
     Route: 030
  11. Novalgin [Concomitant]
     Indication: Product used for unknown indication
     Dosage: UNIT DOSE : 500 MG, FREQUENCY TIME : 6 HOURS
     Route: 048
  12. CIPRALEX [Concomitant]
     Active Substance: ESCITALOPRAM OXALATE
     Indication: Product used for unknown indication
     Dosage: FREQUENCY TIME : 24  HOURS, UNIT DOSE :10 MG
     Route: 048
  13. BENSERAZIDE HYDROCHLORIDE\LEVODOPA [Concomitant]
     Active Substance: BENSERAZIDE HYDROCHLORIDE\LEVODOPA
     Indication: Product used for unknown indication
     Dosage: UNIT DOSE :125 MG, FREQUENCY TIME : 24  HOURS
     Route: 048
  14. AMITRIPTYLINE [Concomitant]
     Active Substance: AMITRIPTYLINE
     Indication: Product used for unknown indication
     Dosage: FREQUENCY TIME : 24 HOURS, UNIT DOSE :24 MG
     Route: 048
  15. VALTREX [Concomitant]
     Active Substance: VALACYCLOVIR HYDROCHLORIDE
     Indication: Product used for unknown indication
     Dosage: UNIT DOSE : 250 MG, FREQUENCY TIME : 12 HOURS
     Route: 048
  16. ALLOPURINOL [Concomitant]
     Active Substance: ALLOPURINOL
     Indication: Product used for unknown indication
     Dosage: FREQUENCY TIME : 24  HOURS, UNIT DOSE : 150 MG
     Route: 048
  17. CREON [Concomitant]
     Active Substance: PANCRELIPASE AMYLASE\PANCRELIPASE LIPASE\PANCRELIPASE PROTEASE
     Indication: Product used for unknown indication
     Dosage: 7 DOSAGE FORMS DAILY; 25000 IE 2-2-3-0
     Route: 048
  18. MOVICOL [Concomitant]
     Active Substance: POLYETHYLENE GLYCOL 3350\POTASSIUM CHLORIDE\SODIUM BICARBONATE\SODIUM CHLORIDE
     Indication: Product used for unknown indication
     Dosage: FREQUENCY TIME : 24  HOURS
     Route: 048
  19. PANTOZOL [Concomitant]
     Active Substance: PANTOPRAZOLE SODIUM
     Indication: Product used for unknown indication
     Dosage: UNIT DOSE :  20 MG, FREQUENCY TIME : 12 HOURS
     Route: 048
  20. HUMALOG [Concomitant]
     Active Substance: INSULIN LISPRO
     Indication: Product used for unknown indication
     Route: 048

REACTIONS (2)
  - Myoclonus [Recovered/Resolved]
  - Prescribed overdose [Recovered/Resolved]

NARRATIVE: CASE EVENT DATE: 20221201
